FAERS Safety Report 14235492 (Version 2)
Quarter: 2018Q3

REPORT INFORMATION
  Report Type: Report from Study
  Country: None (occurrence: US)
  Receive Date: 20171129
  Receipt Date: 20180925
  Transmission Date: 20181010
  Serious: Yes (Other)
  Sender: FDA-Public Use
  Company Number: US-ABBVIE-17K-163-2026639-00

PATIENT
  Sex: Female

DRUGS (1)
  1. HUMIRA [Suspect]
     Active Substance: ADALIMUMAB
     Indication: HIDRADENITIS
     Route: 058

REACTIONS (8)
  - Hepatic enzyme increased [Unknown]
  - Needle issue [Unknown]
  - Hidradenitis [Unknown]
  - Cyst [Unknown]
  - Fistula [Unknown]
  - Injection site pain [Unknown]
  - Cyst [Unknown]
  - Secretion discharge [Unknown]

NARRATIVE: CASE EVENT DATE: 2018
